FAERS Safety Report 18258377 (Version 2)
Quarter: 2020Q4

REPORT INFORMATION
  Report Type: Spontaneous
  Country: RU (occurrence: RU)
  Receive Date: 20200911
  Receipt Date: 20201016
  Transmission Date: 20210113
  Serious: Yes (Other)
  Sender: FDA-Public Use
  Company Number: NVSC2020RU247913

PATIENT

DRUGS (3)
  1. RITUXIMAB. [Suspect]
     Active Substance: RITUXIMAB
     Indication: BURKITT^S LYMPHOMA
     Dosage: 375 MG/M2
     Route: 065
  2. METHOTREXATE. [Suspect]
     Active Substance: METHOTREXATE
     Indication: BURKITT^S LYMPHOMA
     Dosage: 5000 MG/M2, BID (1000-5000 MG/M2) (HIGH DOSE)
     Route: 065
  3. CYTOSAR [Suspect]
     Active Substance: CYTARABINE
     Indication: BURKITT^S LYMPHOMA
     Dosage: 3000 MG/M2, BID (HIGH DOSE)
     Route: 065

REACTIONS (2)
  - Acute myeloid leukaemia [Recovered/Resolved]
  - Second primary malignancy [Recovered/Resolved]
